FAERS Safety Report 7155921 (Version 2)
Quarter: 2013Q3

REPORT INFORMATION
  Report Type: Spontaneous
  Country: CA (occurrence: CA)
  Receive Date: 20091022
  Receipt Date: 20130828
  Transmission Date: 20140515
  Serious: Yes (Other)
  Sender: FDA-Public Use
  Company Number: CA-ROCHE-663583

PATIENT
  Age: 52 Year
  Sex: Male

DRUGS (19)
  1. SAQUINAVIR [Suspect]
     Indication: HIV INFECTION
     Route: 048
  2. FUZEON [Suspect]
     Indication: PRODUCT USED FOR UNKNOWN INDICATION
     Route: 058
  3. VIRACEPT [Suspect]
     Indication: PRODUCT USED FOR UNKNOWN INDICATION
     Route: 065
  4. ZIDOVUDINE [Suspect]
     Indication: HIV INFECTION
     Route: 065
  5. VIDEX EC [Suspect]
     Indication: HIV INFECTION
     Route: 048
  6. ZERIT [Suspect]
     Indication: HIV INFECTION
     Route: 065
  7. ZIAGEN [Suspect]
     Indication: HIV INFECTION
     Route: 065
  8. NEVIRAPINE [Suspect]
     Indication: PRODUCT USED FOR UNKNOWN INDICATION
     Route: 065
  9. RESCRIPTOR [Suspect]
     Indication: HIV INFECTION
     Route: 065
  10. SUSTIVA [Suspect]
     Indication: HIV INFECTION
     Route: 048
  11. CRIXIVAN [Suspect]
     Indication: HIV INFECTION
     Route: 065
  12. KALETRA [Suspect]
     Indication: HIV INFECTION
     Route: 065
  13. VIREAD [Suspect]
     Indication: HIV INFECTION
     Route: 065
  14. PREZISTA [Suspect]
     Indication: HIV INFECTION
     Route: 065
  15. LAMIVUDINE [Suspect]
     Indication: PRODUCT USED FOR UNKNOWN INDICATION
     Route: 065
  16. RITONAVIR [Suspect]
     Indication: HIV INFECTION
     Route: 065
  17. LOPINAVIR [Suspect]
     Indication: HIV INFECTION
     Route: 065
  18. ISENTRESS [Suspect]
     Indication: HIV INFECTION
     Route: 048
  19. INTELENCE [Suspect]
     Indication: HIV INFECTION
     Route: 065

REACTIONS (5)
  - Progressive external ophthalmoplegia [Unknown]
  - Diplopia [Unknown]
  - Mitochondrial toxicity [Unknown]
  - Lipodystrophy acquired [Unknown]
  - Eyelid ptosis [Unknown]
